FAERS Safety Report 8740211 (Version 2)
Quarter: 2013Q4

REPORT INFORMATION
  Report Type: Spontaneous
  Country: US (occurrence: US)
  Receive Date: 20120823
  Receipt Date: 20131101
  Transmission Date: 20140711
  Serious: No
  Sender: FDA-Public Use
  Company Number: US-009507513-1208USA002004

PATIENT
  Sex: Female
  Weight: 104.76 kg

DRUGS (10)
  1. VICTRELIS [Suspect]
     Indication: HEPATITIS C
     Dosage: 800 MG, TID
     Route: 048
  2. REBETOL [Concomitant]
  3. PEGASYS [Concomitant]
     Dosage: 180MCG/M
  4. RECLAST [Concomitant]
     Dosage: INJ 5/100ML
  5. DIPHENHYDRAMINE CITRATE [Concomitant]
  6. IBUPROFEN [Concomitant]
  7. ACETAMINOFEN [Concomitant]
     Dosage: 160/5ML
  8. TUMS [Concomitant]
  9. VITAMIN D (UNSPECIFIED) [Concomitant]
     Dosage: HIGH CAP POTENCY
  10. PROCRIT [Concomitant]
     Dosage: 10000/ML

REACTIONS (1)
  - Anaemia [Unknown]
